FAERS Safety Report 7041254-5 (Version None)
Quarter: 2010Q4

REPORT INFORMATION
  Report Type: 
  Country: None (occurrence: None)
  Receive Date: 20101013
  Receipt Date: 20100929
  Transmission Date: 20110411
  Serious: Yes (Hospitalization)
  Sender: FDA-Public Use
  Company Number: PHHY2010NZ65266

PATIENT
  Age: 62 Year
  Sex: Male

DRUGS (1)
  1. ZOLEDRONATE [Suspect]

REACTIONS (9)
  - CONJUNCTIVAL OEDEMA [None]
  - CONJUNCTIVITIS INFECTIVE [None]
  - ERYTHEMA OF EYELID [None]
  - EYE MOVEMENT DISORDER [None]
  - EYELID PTOSIS [None]
  - OCULAR DISCOMFORT [None]
  - PAROPHTHALMIA [None]
  - PERIORBITAL OEDEMA [None]
  - VISION BLURRED [None]
